FAERS Safety Report 4692409-6 (Version None)
Quarter: 2005Q2

REPORT INFORMATION
  Report Type: 
  Country: None (occurrence: None)
  Receive Date: 20050615
  Receipt Date: 20050531
  Transmission Date: 20051028
  Serious: Yes (Death, Other)
  Sender: FDA-Public Use
  Company Number: US_0506118092

PATIENT
  Age: 10 Year
  Sex: Male

DRUGS (5)
  1. VINCRISTINE SULFATE [Suspect]
     Indication: NEOPLASM
     Dosage: UNK
     Route: 065
  2. VP-16 (ETOPOSIDE /00511901/) [Concomitant]
  3. IFOSFAMIDE [Concomitant]
  4. DACTINOMYCIN [Concomitant]
  5. ADRIAMYCIN (DOXORUBICIN) /00330901/) [Concomitant]

REACTIONS (6)
  - ADRENAL SUPPRESSION [None]
  - COMA HEPATIC [None]
  - HEPATORENAL FAILURE [None]
  - KLEBSIELLA SEPSIS [None]
  - NEOPLASM PROGRESSION [None]
  - THERAPY NON-RESPONDER [None]
